FAERS Safety Report 23781573 (Version 2)
Quarter: 2024Q2

REPORT INFORMATION
  Report Type: Spontaneous
  Country: JP (occurrence: JP)
  Receive Date: 20240425
  Receipt Date: 20240601
  Transmission Date: 20240716
  Serious: Yes (Other)
  Sender: FDA-Public Use
  Company Number: JP-AMGEN-JPNSP2024080791

PATIENT
  Age: 8 Year
  Sex: Female

DRUGS (1)
  1. BLINCYTO [Suspect]
     Active Substance: BLINATUMOMAB
     Indication: Product used for unknown indication
     Dosage: 5 MICROGRAM/SQ. METER, DRIP INFUSION
     Route: 042

REACTIONS (3)
  - Central nervous system infection [Recovered/Resolved]
  - Disease recurrence [Unknown]
  - Shock haemorrhagic [Unknown]
